FAERS Safety Report 11333922 (Version 3)
Quarter: 2016Q1

REPORT INFORMATION
  Report Type: Spontaneous
  Country: US (occurrence: US)
  Receive Date: 20150803
  Receipt Date: 20160108
  Transmission Date: 20160525
  Serious: Yes (Hospitalization, Other)
  Sender: FDA-Public Use
  Company Number: US-PFIZER INC-2015254805

PATIENT
  Age: 81 Year
  Sex: Male

DRUGS (3)
  1. LYRICA [Suspect]
     Active Substance: PREGABALIN
     Indication: PAIN IN EXTREMITY
  2. LYRICA [Suspect]
     Active Substance: PREGABALIN
     Indication: NERVE COMPRESSION
     Dosage: 75 MG, 2X/DAY
     Dates: start: 20150525, end: 20150608
  3. LYRICA [Suspect]
     Active Substance: PREGABALIN
     Indication: NEUROPATHY PERIPHERAL
     Dosage: 75 MG, 2X/DAY
     Route: 048
     Dates: start: 20150601, end: 20150608

REACTIONS (8)
  - Malaise [Recovered/Resolved with Sequelae]
  - Mental impairment [Not Recovered/Not Resolved]
  - Lethargy [Unknown]
  - Drug ineffective [Unknown]
  - Muscle injury [Not Recovered/Not Resolved]
  - Muscular weakness [Unknown]
  - Asthenia [Recovered/Resolved with Sequelae]
  - Activities of daily living impaired [Unknown]

NARRATIVE: CASE EVENT DATE: 20150601
